FAERS Safety Report 15265175 (Version 1)
Quarter: 2018Q3

REPORT INFORMATION
  Report Type: Spontaneous
  Country: US (occurrence: US)
  Receive Date: 20180723
  Receipt Date: 20180723
  Transmission Date: 20181010
  Serious: Yes (Other)
  Sender: FDA-Public Use
  Company Number: None

PATIENT
  Age: 58 Year
  Sex: Female

DRUGS (9)
  1. OXYBUTYNIN 10 MG AT BEDTIME [Concomitant]
     Dates: start: 20180122
  2. ATORVASTATIN 20 MG IN THE MORNING [Concomitant]
     Dates: start: 20160715
  3. DOCUSATE CALCIUM 240 MG DAILY [Concomitant]
     Dates: start: 20180122
  4. SERTRALINE [Suspect]
     Active Substance: SERTRALINE HYDROCHLORIDE
     Indication: DEPRESSION
     Route: 048
     Dates: start: 20180228, end: 20180518
  5. CLOZAPINE 400 MG AT BEDTIME [Concomitant]
     Dates: start: 20180426
  6. AMLODIPINE 5 MG IN THE MORNING [Concomitant]
     Dates: start: 20160817
  7. LISINOPRIL 5 MG IN THE MORNING [Concomitant]
     Dates: start: 20170331
  8. ASPIRIN 81 MG DAILY [Concomitant]
     Dates: start: 20180122
  9. METFORMIN 1000 MG TWICE DAILY [Concomitant]
     Dates: start: 20170502

REACTIONS (8)
  - Delusion [None]
  - Chest pain [None]
  - Seizure [None]
  - Dyspnoea [None]
  - Dysphoria [None]
  - Sinus tachycardia [None]
  - Therapy change [None]
  - Electrocardiogram QT prolonged [None]

NARRATIVE: CASE EVENT DATE: 20180517
